FAERS Safety Report 15912030 (Version 1)
Quarter: 2019Q1

REPORT INFORMATION
  Report Type: Spontaneous
  Country: US (occurrence: US)
  Receive Date: 20190204
  Receipt Date: 20190204
  Transmission Date: 20190417
  Serious: No
  Sender: FDA-Public Use
  Company Number: US-ABBVIE-18K-163-2350816-00

PATIENT
  Sex: Female

DRUGS (3)
  1. METHOTREXATE. [Suspect]
     Active Substance: METHOTREXATE
     Indication: RHEUMATOID ARTHRITIS
     Dosage: 0.8 CC WEEKLY
     Route: 050
     Dates: start: 201605
  2. HUMIRA [Suspect]
     Active Substance: ADALIMUMAB
     Indication: RHEUMATOID ARTHRITIS
     Route: 058
     Dates: start: 201610, end: 201709
  3. METHOTREXATE. [Suspect]
     Active Substance: METHOTREXATE
     Route: 050
     Dates: end: 201712

REACTIONS (7)
  - Sjogren^s syndrome [Unknown]
  - Infection [Unknown]
  - Gastritis [Unknown]
  - Drug ineffective [Unknown]
  - Injection site pain [Unknown]
  - Episcleritis [Unknown]
  - Influenza [Unknown]

NARRATIVE: CASE EVENT DATE: 2017
